FAERS Safety Report 6934602-5 (Version None)
Quarter: 2010Q3

REPORT INFORMATION
  Report Type: 
  Country: None (occurrence: None)
  Receive Date: 20100820
  Receipt Date: 20100811
  Transmission Date: 20110219
  Serious: Yes (Hospitalization)
  Sender: FDA-Public Use
  Company Number: US-JNJFOC-20100704473

PATIENT
  Sex: Female
  Weight: 68.04 kg

DRUGS (10)
  1. INFLIXIMAB, RECOMBINANT [Suspect]
     Indication: CROHN'S DISEASE
     Route: 042
  2. INFLIXIMAB, RECOMBINANT [Suspect]
     Route: 042
  3. INFLIXIMAB, RECOMBINANT [Suspect]
     Route: 042
  4. INFLIXIMAB, RECOMBINANT [Suspect]
     Route: 042
  5. INFLIXIMAB, RECOMBINANT [Suspect]
     Route: 042
  6. INFLIXIMAB, RECOMBINANT [Suspect]
     Route: 042
  7. INFLIXIMAB, RECOMBINANT [Suspect]
     Dosage: RECEIVED 10 INFLIXIMAB INFUSIONS BEFORE TREAT REGISTRY AND 33 INFUSIONS TO DATE IN THE REGISTRY
     Route: 042
  8. ANTIHISTAMINES [Concomitant]
     Indication: PREMEDICATION
  9. ACETAMINOPHEN [Concomitant]
     Indication: PREMEDICATION
  10. AZATHIOPRINE [Concomitant]
     Indication: CROHN'S DISEASE

REACTIONS (1)
  - APPENDICITIS [None]
